FAERS Safety Report 11783283 (Version 1)
Quarter: 2015Q4

REPORT INFORMATION
  Report Type: Report from Study
  Country: US (occurrence: US)
  Receive Date: 20151127
  Receipt Date: 20151127
  Transmission Date: 20160305
  Serious: Yes (Hospitalization)
  Sender: FDA-Public Use
  Company Number: PHEH2015US024552

PATIENT
  Sex: Female

DRUGS (2)
  1. AFINITOR [Suspect]
     Active Substance: EVEROLIMUS
     Dosage: UNK
     Route: 048
  2. AFINITOR [Suspect]
     Active Substance: EVEROLIMUS
     Indication: NEOPLASM MALIGNANT
     Dosage: 5 MG, QD
     Route: 048
     Dates: start: 20151002

REACTIONS (5)
  - Malnutrition [Unknown]
  - Respiratory tract infection [Unknown]
  - Weight decreased [Unknown]
  - Cystitis [Unknown]
  - Dehydration [Unknown]
